FAERS Safety Report 6567287-0 (Version None)
Quarter: 2010Q1

REPORT INFORMATION
  Report Type: 
  Country: None (occurrence: None)
  Receive Date: 20100128
  Receipt Date: 20100114
  Transmission Date: 20100710
  Serious: Yes (Other)
  Sender: FDA-Public Use
  Company Number: A-NJ2009-27945

PATIENT
  Age: 37 Year
  Sex: Female

DRUGS (4)
  1. TRACLEER [Suspect]
     Indication: PULMONARY ARTERIAL HYPERTENSION
     Dosage: 125 MG, BID, ORAL; ORAL
     Route: 048
     Dates: start: 20060308, end: 20090101
  2. TRACLEER [Suspect]
     Indication: PULMONARY ARTERIAL HYPERTENSION
     Dosage: 125 MG, BID, ORAL; ORAL
     Route: 048
     Dates: start: 20090623
  3. REMODULIN (TREPROSTINIL) [Concomitant]
  4. SILDENAFIL CITRATE [Concomitant]

REACTIONS (9)
  - CAESAREAN SECTION [None]
  - DRUG EXPOSURE DURING PREGNANCY [None]
  - HAEMOGLOBIN DECREASED [None]
  - HEPARIN-INDUCED THROMBOCYTOPENIA [None]
  - PLATELET COUNT DECREASED [None]
  - PREGNANCY [None]
  - TACHYCARDIA [None]
  - TREATMENT NONCOMPLIANCE [None]
  - VAGINAL HAEMORRHAGE [None]
